FAERS Safety Report 23020434 (Version 1)
Quarter: 2023Q4

REPORT INFORMATION
  Report Type: Other
  Country: None (occurrence: US)
  Receive Date: 20231003
  Receipt Date: 20231003
  Transmission Date: 20240109
  Serious: Yes (Hospitalization, Other)
  Sender: FDA-Public Use
  Company Number: US-Marksans Pharma Limited-2146579

PATIENT
  Sex: Male
  Weight: 1.92 kg

DRUGS (3)
  1. GABAPENTIN [Suspect]
     Active Substance: GABAPENTIN
     Indication: Product used for unknown indication
     Route: 064
  2. BUPRENORPHINE [Concomitant]
     Active Substance: BUPRENORPHINE
     Route: 064
  3. BENZODIAZEPINE [Concomitant]
     Active Substance: BENZODIAZEPINE
     Route: 064

REACTIONS (8)
  - Maternal exposure during pregnancy [Unknown]
  - Hypoxic ischaemic encephalopathy neonatal [Unknown]
  - Congenital multiplex arthrogryposis [Unknown]
  - Neonatal respiratory distress [Unknown]
  - Sepsis [Unknown]
  - Gastrooesophageal reflux disease [Unknown]
  - Drug withdrawal syndrome neonatal [Unknown]
  - Developmental hip dysplasia [Unknown]
